FAERS Safety Report 11426130 (Version 1)
Quarter: 2015Q3

REPORT INFORMATION
  Report Type: Spontaneous
  Country: US (occurrence: US)
  Receive Date: 20150827
  Receipt Date: 20150827
  Transmission Date: 20151125
  Serious: No
  Sender: FDA-Public Use
  Company Number: ALCN2015US005393

PATIENT
  Age: 57 Year
  Sex: Female

DRUGS (2)
  1. MAXITROL [Suspect]
     Active Substance: DEXAMETHASONE\NEOMYCIN SULFATE\POLYMYXIN B SULFATE
     Indication: CONJUNCTIVITIS VIRAL
     Dosage: 1 GTT, QID
     Route: 047
     Dates: start: 20150804, end: 20150811
  2. MAXITROL [Suspect]
     Active Substance: DEXAMETHASONE\NEOMYCIN SULFATE\POLYMYXIN B SULFATE
     Indication: CORNEAL INFILTRATES

REACTIONS (1)
  - Contraindicated drug administered [Recovered/Resolved]

NARRATIVE: CASE EVENT DATE: 20150804
